FAERS Safety Report 6543256-1 (Version None)
Quarter: 2010Q1

REPORT INFORMATION
  Report Type: 
  Country: None (occurrence: None)
  Receive Date: 20100120
  Receipt Date: 20100113
  Transmission Date: 20100710
  Serious: Yes (Other)
  Sender: FDA-Public Use
  Company Number: US-BAYER-201011271NA

PATIENT
  Age: 29 Year
  Sex: Female
  Weight: 61 kg

DRUGS (2)
  1. MIRENA [Suspect]
     Indication: CONTRACEPTION
     Dosage: CONTINUOUS
     Route: 015
     Dates: start: 20100112
  2. ANTIBIOTICS [Concomitant]

REACTIONS (3)
  - ABDOMINAL PAIN LOWER [None]
  - DEVICE DISLOCATION [None]
  - VAGINAL HAEMORRHAGE [None]
